FAERS Safety Report 5947355-4 (Version None)
Quarter: 2008Q4

REPORT INFORMATION
  Report Type: 
  Country: None (occurrence: None)
  Receive Date: 20081110
  Receipt Date: 20081030
  Transmission Date: 20090506
  Serious: Yes (Congenital Anomaly, Other)
  Sender: FDA-Public Use
  Company Number: US-PFIZER INC-2008049751

PATIENT
  Sex: Male
  Weight: 3 kg

DRUGS (2)
  1. ZOLOFT [Suspect]
     Indication: ANXIETY
     Dates: start: 19930512
  2. ZOLOFT [Suspect]
     Indication: DEPRESSION

REACTIONS (7)
  - ASPLENIA [None]
  - DRUG EXPOSURE DURING PREGNANCY [None]
  - HEART DISEASE CONGENITAL [None]
  - HYPERTENSION [None]
  - PHAEOCHROMOCYTOMA [None]
  - PULMONARY ARTERY ATRESIA [None]
  - TRANSPOSITION OF THE GREAT VESSELS [None]
